FAERS Safety Report 6379728-2 (Version None)
Quarter: 2009Q3

REPORT INFORMATION
  Report Type: 
  Country: None (occurrence: None)
  Receive Date: 20090928
  Receipt Date: 20090921
  Transmission Date: 20100115
  Serious: Yes (Death, Other)
  Sender: FDA-Public Use
  Company Number: GB-AVENTIS-200920765GDDC

PATIENT
  Age: 78 Year
  Sex: Male

DRUGS (1)
  1. TAXOTERE [Suspect]
     Dosage: DOSE: STARTED 7-8 WEEKS AGO
     Dates: start: 20090101, end: 20090101

REACTIONS (2)
  - MYALGIA [None]
  - RENAL FAILURE [None]
